FAERS Safety Report 11468826 (Version 1)
Quarter: 2015Q3

REPORT INFORMATION
  Report Type: Spontaneous
  Country: GB (occurrence: GB)
  Receive Date: 20150908
  Receipt Date: 20150908
  Transmission Date: 20151125
  Serious: Yes (Life-Threatening, Hospitalization)
  Sender: FDA-Public Use
  Company Number: GB-ASTRAZENECA-2015SE85451

PATIENT
  Age: 45 Year
  Sex: Female
  Weight: 70 kg

DRUGS (10)
  1. METFORMIN [Concomitant]
     Active Substance: METFORMIN HYDROCHLORIDE
  2. ESTROGENS, CONJUGATED AND MEDROXYPROGESTERONE ACETATE [Concomitant]
     Active Substance: ESTROGENS, CONJUGATED\MEDROXYPROGESTERONE ACETATE
  3. DAPAGLIFLOZIN [Suspect]
     Active Substance: DAPAGLIFLOZIN
     Indication: TYPE 2 DIABETES MELLITUS
     Route: 048
     Dates: start: 20150813, end: 20150820
  4. RAMIPRIL. [Concomitant]
     Active Substance: RAMIPRIL
  5. FULTIUM-D3 [Concomitant]
  6. BISOPROLOL [Concomitant]
     Active Substance: BISOPROLOL
  7. SIMVASTATIN. [Concomitant]
     Active Substance: SIMVASTATIN
  8. SITAGLIPTIN [Concomitant]
     Active Substance: SITAGLIPTIN
  9. THYROXINE [Concomitant]
     Active Substance: LEVOTHYROXINE
  10. LERCANIDIPINE [Concomitant]
     Active Substance: LERCANIDIPINE

REACTIONS (5)
  - Diabetic ketoacidosis [Recovering/Resolving]
  - Acute kidney injury [Recovering/Resolving]
  - Vomiting [Recovering/Resolving]
  - Urosepsis [Unknown]
  - Dehydration [Recovering/Resolving]

NARRATIVE: CASE EVENT DATE: 20150820
